FAERS Safety Report 9146659 (Version 1)
Quarter: 2013Q1

REPORT INFORMATION
  Report Type: Spontaneous
  Country: US (occurrence: US)
  Receive Date: 20130307
  Receipt Date: 20130307
  Transmission Date: 20140127
  Serious: Yes (Disabling)
  Sender: FDA-Public Use
  Company Number: US-ROCHE-1193825

PATIENT
  Sex: Male

DRUGS (4)
  1. BONIVA [Suspect]
     Indication: OSTEOPOROSIS
     Route: 048
     Dates: start: 20121120, end: 20130220
  2. PRESTONE [Concomitant]
  3. VITAMIN D3 [Concomitant]
  4. FISH OIL [Concomitant]

REACTIONS (2)
  - Muscle spasms [Unknown]
  - Speech disorder [Not Recovered/Not Resolved]
